FAERS Safety Report 5834604-6 (Version None)
Quarter: 2008Q3

REPORT INFORMATION
  Report Type: 
  Country: None (occurrence: None)
  Receive Date: 20080801
  Receipt Date: 20080729
  Transmission Date: 20090109
  Serious: Yes (Death, Hospitalization, Other)
  Sender: FDA-Public Use
  Company Number: 2008SP014058

PATIENT
  Age: 83 Year
  Sex: Male
  Weight: 85.27 kg

DRUGS (13)
  1. TEMODAR [Suspect]
     Indication: NON-SMALL CELL LUNG CANCER
     Dosage: 75 MG/M2;QD;PO
     Route: 048
     Dates: start: 20080603, end: 20080623
  2. JANUVIA [Concomitant]
  3. LOPRESSOR [Concomitant]
  4. COUMADIN [Concomitant]
  5. HUMIBID [Concomitant]
  6. ASPIRIN [Concomitant]
  7. LISINOPRIL [Concomitant]
  8. HYDROCHLOROTHIAZIDE [Concomitant]
  9. LASIX [Concomitant]
  10. SIMVASTATIN [Concomitant]
  11. COMBIVENT [Concomitant]
  12. PULMICORT-100 [Concomitant]
  13. LANTUS [Concomitant]

REACTIONS (13)
  - ANAEMIA [None]
  - ATRIAL FLUTTER [None]
  - DISEASE PROGRESSION [None]
  - FALL [None]
  - GENERAL PHYSICAL HEALTH DETERIORATION [None]
  - HIP FRACTURE [None]
  - HYPOTENSION [None]
  - RENAL FAILURE [None]
  - RENAL FAILURE ACUTE [None]
  - THROMBOCYTOPENIA [None]
  - UPPER GASTROINTESTINAL HAEMORRHAGE [None]
  - VENTRICULAR ARRHYTHMIA [None]
  - VENTRICULAR TACHYCARDIA [None]
